FAERS Safety Report 9096196 (Version 4)
Quarter: 2016Q3

REPORT INFORMATION
  Report Type: Report from Study
  Country: JP (occurrence: JP)
  Receive Date: 20130207
  Receipt Date: 20160802
  Transmission Date: 20161109
  Serious: Yes (Hospitalization)
  Sender: FDA-Public Use
  Company Number: JP-ASTRAZENECA-2013SE07767

PATIENT
  Age: 86 Year
  Sex: Female
  Weight: 54 kg

DRUGS (14)
  1. BASEN OD [Concomitant]
     Active Substance: VOGLIBOSE
     Indication: DIABETES MELLITUS
     Route: 048
     Dates: start: 20101206, end: 20120806
  2. ATELEC [Concomitant]
     Active Substance: CILNIDIPINE
     Indication: HYPERTENSION
     Route: 048
     Dates: start: 20100510, end: 20110620
  3. LANTUS [Concomitant]
     Active Substance: INSULIN GLARGINE
     Indication: DIABETES MELLITUS
     Route: 058
     Dates: start: 20100524, end: 20110425
  4. MEVALOTIN (PRAVASTATIN SODIUM) (10 MG DAILY) [Concomitant]
     Dates: start: 20100705, end: 20101206
  5. LIVALO [Concomitant]
     Active Substance: PITAVASTATIN CALCIUM
     Dates: start: 20110425, end: 20121217
  6. LAC-B [Concomitant]
     Active Substance: BIFIDOBACTERIUM SPP.
     Route: 048
     Dates: start: 20120514, end: 20121228
  7. SELARA [Concomitant]
     Active Substance: EPLERENONE
     Indication: HYPERTENSION
     Route: 048
     Dates: start: 20100524, end: 20120312
  8. GLACTIV [Concomitant]
     Active Substance: SITAGLIPTIN
     Dates: start: 20121127, end: 20121217
  9. LAXOBERON [Concomitant]
     Active Substance: SODIUM PICOSULFATE
     Dates: start: 20120312
  10. POSTERISAN [Concomitant]
     Active Substance: LIDOCAINE
     Route: 062
     Dates: start: 20120514
  11. CRESTOR [Suspect]
     Active Substance: ROSUVASTATIN CALCIUM
     Indication: HYPERCHOLESTEROLAEMIA
     Route: 048
     Dates: start: 20101206, end: 20121125
  12. BASEN OD [Concomitant]
     Active Substance: VOGLIBOSE
     Indication: DIABETES MELLITUS
     Route: 048
     Dates: start: 20080423, end: 20101206
  13. ANTUP [Concomitant]
     Indication: HYPERTENSION
     Route: 062
     Dates: start: 20121106
  14. IRBETAN [Concomitant]
     Active Substance: IRBESARTAN
     Indication: HYPERTENSION
     Route: 048
     Dates: start: 20091228, end: 20120806

REACTIONS (3)
  - Bile duct stone [Unknown]
  - Cholelithiasis [Unknown]
  - Rectal cancer [Not Recovered/Not Resolved]

NARRATIVE: CASE EVENT DATE: 20121205
